FAERS Safety Report 8899275 (Version 1)
Quarter: 2012Q4

REPORT INFORMATION
  Report Type: 
  Country: US (occurrence: US)
  Receive Date: 20121108
  Receipt Date: 20121108
  Transmission Date: 20130627
  Serious: No
  Sender: FDA-Public Use
  Company Number: US-AMGEN-USASP2012035356

PATIENT
  Age: 74 Year
  Sex: Female
  Weight: 92.52 kg

DRUGS (11)
  1. ENBREL [Suspect]
     Indication: PSORIASIS
     Dosage: 50 mg, qwk
     Route: 058
  2. GEMFIBROZIL [Concomitant]
     Dosage: 600 mg, UNK
  3. ASPIRIN (E.C.) [Concomitant]
     Dosage: 81 mg, UNK
  4. DOXYCYCLIN                         /00055701/ [Concomitant]
     Dosage: 50 mg, UNK
  5. TOPROL [Concomitant]
     Dosage: 200 mg, UNK
  6. XANAX [Concomitant]
     Dosage: 0.5 mg, UNK
  7. LASIX                              /00032601/ [Concomitant]
     Dosage: 40 mg, UNK
  8. POTASSIUM [Concomitant]
     Dosage: 95 mg, UNK
  9. SYNTHROID [Concomitant]
     Dosage: 125 mug, UNK
  10. NEXIUM                             /01479302/ [Concomitant]
     Dosage: 40 mg, UNK
  11. ULORIC [Concomitant]
     Dosage: 80 mg, UNK

REACTIONS (1)
  - Drug ineffective [Unknown]
